FAERS Safety Report 5865745-5 (Version None)
Quarter: 2008Q3

REPORT INFORMATION
  Report Type: 
  Country: None (occurrence: None)
  Receive Date: 20080829
  Receipt Date: 20080821
  Transmission Date: 20090109
  Serious: Yes (Other)
  Sender: FDA-Public Use
  Company Number: PHHY2008FR18863

PATIENT
  Age: 86 Year
  Sex: Male

DRUGS (8)
  1. EXELON [Suspect]
     Dosage: 9.5 MG, QD
     Route: 062
  2. TIMOPTIC [Interacting]
     Dosage: UNK
  3. REQUIP [Concomitant]
     Dosage: 9.5 MG, QD
  4. ESOMEPRAZOLE [Concomitant]
  5. LASIX [Concomitant]
     Dosage: 40 MG, QD
  6. HYPERIUM [Concomitant]
     Dosage: UNK
  7. PLAVIX [Concomitant]
     Dosage: UNK
  8. DEROXAT [Concomitant]
     Dosage: A HALF TABLET/ DAY

REACTIONS (2)
  - BRADYCARDIA [None]
  - DRUG INTERACTION [None]
